FAERS Safety Report 5120757-4 (Version None)
Quarter: 2006Q4

REPORT INFORMATION
  Report Type: 
  Country: None (occurrence: None)
  Receive Date: 20061003
  Receipt Date: 20061003
  Transmission Date: 20070319
  Serious: Yes (Other)
  Sender: FDA-Public Use
  Company Number: None

PATIENT
  Sex: Female
  Weight: 68.9467 kg

DRUGS (1)
  1. ACYCLOVIR [Suspect]
     Indication: HERPES SIMPLEX
     Dosage: 200 MG PO DAILY
     Route: 048
     Dates: start: 19990101

REACTIONS (3)
  - DIARRHOEA [None]
  - NAUSEA [None]
  - PHARMACEUTICAL PRODUCT COMPLAINT [None]
